FAERS Safety Report 14918906 (Version 1)
Quarter: 2018Q2

REPORT INFORMATION
  Report Type: Spontaneous
  Country: US (occurrence: US)
  Receive Date: 20180521
  Receipt Date: 20180521
  Transmission Date: 20180711
  Serious: No
  Sender: FDA-Public Use
  Company Number: US-BION-006799

PATIENT
  Age: 52 Year
  Sex: Female

DRUGS (1)
  1. IBUPROFEN 200 MG SOFTGEL BAN 300CT [Suspect]
     Active Substance: IBUPROFEN
     Indication: PAIN
     Dosage: 2 SOFTGEL TWICE DAILY??STRENGTH: 200 MG
     Route: 048
     Dates: start: 20171122, end: 20171123

REACTIONS (4)
  - Abdominal discomfort [Recovered/Resolved]
  - Product odour abnormal [Unknown]
  - Poor quality drug administered [Not Recovered/Not Resolved]
  - Vomiting [Recovered/Resolved]

NARRATIVE: CASE EVENT DATE: 20171122
